FAERS Safety Report 21496568 (Version 1)
Quarter: 2022Q4

REPORT INFORMATION
  Report Type: Report from Study
  Country: US (occurrence: US)
  Receive Date: 20221022
  Receipt Date: 20221022
  Transmission Date: 20230112
  Serious: No
  Sender: FDA-Public Use
  Company Number: US-ABBVIE-4148203

PATIENT
  Sex: Female

DRUGS (3)
  1. HUMIRA [Suspect]
     Active Substance: ADALIMUMAB
     Indication: Rheumatoid arthritis
     Dosage: CITRATE FREE
     Dates: start: 20220513
  2. Pfizer/BioNTech [Concomitant]
     Indication: COVID-19 immunisation
     Dosage: FREQUENCY- 1-1-ONCE?FIRST DOSE
     Route: 030
     Dates: start: 20220204, end: 20220204
  3. Pfizer/BioNTech [Concomitant]
     Indication: COVID-19 immunisation
     Dosage: FREQUENCY- 1-1-ONCE?SECOND DOSE
     Route: 030
     Dates: start: 20220401, end: 20220401

REACTIONS (1)
  - Nasopharyngitis [Recovered/Resolved]
